FAERS Safety Report 7444968-8 (Version None)
Quarter: 2011Q2

REPORT INFORMATION
  Report Type: 
  Country: None (occurrence: None)
  Receive Date: 20110429
  Receipt Date: 20110421
  Transmission Date: 20111010
  Serious: Yes (Other)
  Sender: FDA-Public Use
  Company Number: PHHY2011US24764

PATIENT
  Sex: Female
  Weight: 54.422 kg

DRUGS (7)
  1. EXTAVIA [Suspect]
     Dosage: 0.125 MG, QOD
     Route: 058
     Dates: start: 20110201
  2. TEGRETOL [Concomitant]
     Dosage: UNK UKN, UNK
  3. IMITREX [Concomitant]
  4. IBUPROFEN (ADVIL) [Concomitant]
  5. EXTAVIA [Suspect]
     Indication: MULTIPLE SCLEROSIS
     Dosage: 0.187 MG, QOD
     Route: 058
     Dates: start: 20110101
  6. IBUPROFEN [Concomitant]
     Dosage: UNK UKN, UNK
  7. PERCOCET [Concomitant]

REACTIONS (6)
  - VISION BLURRED [None]
  - INJECTION SITE ERYTHEMA [None]
  - MIGRAINE [None]
  - INJECTION SITE HAEMATOMA [None]
  - HYPOAESTHESIA [None]
  - MULTIPLE SCLEROSIS RELAPSE [None]
